FAERS Safety Report 6045971-5 (Version None)
Quarter: 2009Q1

REPORT INFORMATION
  Report Type: 
  Country: None (occurrence: None)
  Receive Date: 20090121
  Receipt Date: 20090121
  Transmission Date: 20090719
  Serious: Yes (Hospitalization, Disabling, Other)
  Sender: FDA-Public Use
  Company Number: GB-ABBOTT-08P-167-0460621-00

PATIENT
  Sex: Male

DRUGS (14)
  1. KLACID I.V. [Suspect]
     Indication: PARONYCHIA
     Dosage: 500MG/100ML - ACCIDENTALLY ADMINISTERED INTRA-ARTERIALLY
     Route: 042
     Dates: start: 20080616, end: 20080621
  2. KLACID I.V. [Suspect]
     Indication: OSTEOMYELITIS
  3. ACETAMINOPHEN [Concomitant]
     Indication: PAIN
  4. OXYCONTIN [Concomitant]
     Indication: PAIN
  5. OXYGEN [Concomitant]
     Indication: PAIN
  6. OXYCODONE HCL [Concomitant]
     Indication: PAIN
  7. ENOXAPARIN SODIUM [Concomitant]
     Indication: THROMBOSIS PROPHYLAXIS
  8. HEPARIN [Concomitant]
     Indication: THROMBOSIS PROPHYLAXIS
  9. LLOPROST [Concomitant]
     Indication: PERIPHERAL ISCHAEMIA
  10. LLOPROST [Concomitant]
     Indication: AMPUTATION
  11. LLOPROST [Concomitant]
     Indication: PROPHYLAXIS
  12. NULYTELY [Concomitant]
     Indication: CONSTIPATION
  13. TEICOPLANIN [Concomitant]
     Indication: OSTEOMYELITIS
  14. METRONIDAZOLE [Concomitant]
     Indication: OSTEOMYELITIS

REACTIONS (31)
  - ABDOMINAL DISTENSION [None]
  - ABDOMINAL PAIN [None]
  - ADRENAL NEOPLASM [None]
  - ARM AMPUTATION [None]
  - ARTERIAL INJURY [None]
  - CHANGE OF BOWEL HABIT [None]
  - COMPARTMENT SYNDROME [None]
  - CONSTIPATION [None]
  - DRUG ADMINISTRATION ERROR [None]
  - EXTRAVASATION [None]
  - FASCIOTOMY [None]
  - GROIN PAIN [None]
  - INCORRECT ROUTE OF DRUG ADMINISTRATION [None]
  - INFECTION [None]
  - LIMB REDUCTION DEFECT [None]
  - LOCAL SWELLING [None]
  - MOVEMENT DISORDER [None]
  - OPERATIVE HAEMORRHAGE [None]
  - OSTEOMYELITIS [None]
  - PAIN IN EXTREMITY [None]
  - PALLOR [None]
  - PERIPHERAL ARTERIAL OCCLUSIVE DISEASE [None]
  - PERIPHERAL COLDNESS [None]
  - PERIPHERAL ISCHAEMIA [None]
  - PHANTOM PAIN [None]
  - PULSE ABSENT [None]
  - REOCCLUSION [None]
  - SENSORY LOSS [None]
  - SKIN DISCOLOURATION [None]
  - TENSION [None]
  - VESSEL PUNCTURE SITE HAEMATOMA [None]
